FAERS Safety Report 7656064-5 (Version None)
Quarter: 2011Q3

REPORT INFORMATION
  Report Type: 
  Country: None (occurrence: None)
  Receive Date: 20110804
  Receipt Date: 20110720
  Transmission Date: 20111222
  Serious: No
  Sender: FDA-Public Use
  Company Number: US-ELI_LILLY_AND_COMPANY-US201003008661

PATIENT
  Sex: Female

DRUGS (31)
  1. FUROSEMIDE [Concomitant]
     Dosage: 40 MG, DAILY (1/D)
  2. ALBUTEROL SULFATE AUTOHALER [Concomitant]
     Dosage: UNK, AS NEEDED
  3. FORTEO [Suspect]
     Indication: OSTEOPOROSIS POSTMENOPAUSAL
     Dosage: 20 UG, DAILY (1/D)
     Route: 058
  4. KLOR-CON [Concomitant]
     Dosage: 10 MG, DAILY (1/D)
  5. ALPRAZOLAM [Concomitant]
     Dosage: 1 DF, PRN
  6. FORTEO [Suspect]
     Dosage: 20 UG, DAILY (1/D)
     Route: 058
  7. FORTEO [Suspect]
     Dosage: 20 UG, QD
     Route: 058
  8. CRESTOR [Concomitant]
     Dosage: 1.5 DF,QD
  9. SPIRIVA [Concomitant]
     Dosage: 1 DF, QD
     Route: 048
  10. DIMETINDENE [Concomitant]
  11. AMLODIPINE [Concomitant]
     Dosage: 5 MG, DAILY (1/D)
  12. NITROGLYCERIN [Concomitant]
     Dosage: 0.4 MG, AS NEEDED
  13. PROZAC [Concomitant]
  14. FORTEO [Suspect]
     Dosage: 20 UG, QD
     Route: 058
  15. MULTI-VITAMIN [Concomitant]
     Dosage: UNK, DAILY (1/D)
  16. SERZONE [Concomitant]
  17. VITAMIN D [Concomitant]
     Dosage: 1 DF, QD
  18. METHIMAZOLE [Concomitant]
     Dosage: 1.5 DF, QOD
  19. LASIX [Concomitant]
  20. FORTEO [Suspect]
     Dosage: 20 UG, DAILY (1/D)
     Route: 058
  21. VITAMIN E /001105/ [Concomitant]
     Dosage: 1 D/F, UNK
  22. OXYGEN [Concomitant]
     Dosage: EVERY NIGHT AND DURING THE DAY AS NEEDED
     Route: 045
  23. SYMBICORT [Concomitant]
  24. NORVASC [Concomitant]
     Dosage: 1 DF, QD
  25. FLUOXETINE [Concomitant]
     Dosage: 3 DF, QD
  26. CALCIUM PLUS D3 [Concomitant]
     Dosage: 2 D/F, DAILY (1/D)
  27. ASPIRIN [Concomitant]
     Dosage: 81 MG, DAILY (1/D)
  28. ZANTAC [Concomitant]
     Dosage: 300 MG, 2/D
  29. NEFAZODONE [Concomitant]
     Dosage: 1.5 DF, BID
  30. PROAIR HFA [Concomitant]
     Dosage: 2 DF, PRN
  31. PREMARIN [Concomitant]
     Dosage: UNK, QD

REACTIONS (14)
  - FATIGUE [None]
  - DIARRHOEA [None]
  - VOMITING [None]
  - COUGH [None]
  - THYROID DISORDER [None]
  - FALL [None]
  - SURGERY [None]
  - BACK PAIN [None]
  - DARK CIRCLES UNDER EYES [None]
  - ALOPECIA [None]
  - ARTHRALGIA [None]
  - HEAD INJURY [None]
  - CONTUSION [None]
  - DIZZINESS [None]
